FAERS Safety Report 12482687 (Version 2)
Quarter: 2016Q3

REPORT INFORMATION
  Report Type: Report from Study
  Country: JP (occurrence: JP)
  Receive Date: 20160620
  Receipt Date: 20160802
  Transmission Date: 20161109
  Serious: Yes (Death, Hospitalization, Other)
  Sender: FDA-Public Use
  Company Number: JP-SHIRE-JP201506656AA

PATIENT
  Age: 73 Year
  Sex: Male
  Weight: 53 kg

DRUGS (17)
  1. FEBURIC [Concomitant]
     Active Substance: FEBUXOSTAT
     Indication: HYPERURICAEMIA
     Dosage: 10 MG, 1X/DAY:QD (AFTER DINNER)
     Route: 065
     Dates: start: 20150726
  2. HYDREA [Concomitant]
     Active Substance: HYDROXYUREA
     Dosage: 500 MG/DAY, 2X/WEEK
     Route: 048
     Dates: start: 20151022, end: 20151124
  3. BAYASPIRIN [Concomitant]
     Active Substance: ASPIRIN
     Indication: ESSENTIAL THROMBOCYTHAEMIA
     Dosage: UNK, UNKNOWN
     Route: 048
     Dates: start: 200907, end: 20160504
  4. 422 (ANAGRELIDE) [Suspect]
     Active Substance: ANAGRELIDE
     Dosage: 1.5 MG/DAY
     Route: 048
     Dates: start: 20160209, end: 20160504
  5. ALOSITOL [Concomitant]
     Active Substance: ALLOPURINOL
     Indication: HYPERURICAEMIA
     Dosage: 100 MG, 1X/DAY:QD (MORNING)
     Route: 048
     Dates: start: 20120427, end: 20150722
  6. FOLIAMIN [Concomitant]
     Active Substance: FOLIC ACID
     Indication: ANAEMIA
     Dosage: 5 MG, 3X/DAY:TID
     Route: 048
     Dates: start: 20150703
  7. 422 (ANAGRELIDE) [Suspect]
     Active Substance: ANAGRELIDE
     Dosage: 0.5 MG, 2X/DAY:BID
     Route: 048
     Dates: start: 20151008, end: 20160208
  8. METGLUCO [Concomitant]
     Active Substance: METFORMIN HYDROCHLORIDE
     Indication: TYPE 2 DIABETES MELLITUS
     Dosage: UNK, UNKNOWN
     Route: 065
     Dates: start: 20150715, end: 20150720
  9. FAMOTIDINE. [Concomitant]
     Active Substance: FAMOTIDINE
     Indication: PROPHYLAXIS
     Dosage: 20 MG, 1X/DAY:QD (EVENING)
     Route: 048
     Dates: end: 20150722
  10. FUROSEMIDE. [Concomitant]
     Active Substance: FUROSEMIDE
     Indication: CARDIAC FAILURE CHRONIC
     Dosage: 20 MG, 1X/DAY:QD (MORNING)
     Route: 048
     Dates: start: 20150818, end: 20160209
  11. DIART [Concomitant]
     Active Substance: AZOSEMIDE
     Indication: PRODUCT USED FOR UNKNOWN INDICATION
     Dosage: UNK, UNKNOWN
     Route: 065
     Dates: start: 20160210, end: 20160504
  12. HYDREA [Concomitant]
     Active Substance: HYDROXYUREA
     Indication: ESSENTIAL THROMBOCYTHAEMIA
     Dosage: 1000 TO 1500 MG/DAY, UNKNOWN
     Route: 048
     Dates: start: 20090430, end: 20150721
  13. HYDREA [Concomitant]
     Active Substance: HYDROXYUREA
     Dosage: 500 MG/DAY, UNKNOWN
     Route: 048
     Dates: start: 20151125, end: 20160504
  14. MAGMITT [Concomitant]
     Active Substance: MAGNESIUM OXIDE
     Indication: CONSTIPATION
     Dosage: UNK, UNKNOWN
     Route: 065
     Dates: end: 20150626
  15. FEBURIC [Concomitant]
     Active Substance: FEBUXOSTAT
     Dosage: 40 MG, 1X/DAY:QD
     Route: 048
     Dates: end: 20160504
  16. 422 (ANAGRELIDE) [Suspect]
     Active Substance: ANAGRELIDE
     Indication: ESSENTIAL THROMBOCYTHAEMIA
     Dosage: 0.5 MG, 2X/DAY:BID (MORNING, EVENING)
     Route: 048
     Dates: start: 20150618, end: 20150709
  17. NEXIUM [Concomitant]
     Active Substance: ESOMEPRAZOLE MAGNESIUM
     Indication: PROPHYLAXIS
     Dosage: 20 MG, 1X/DAY:QD (AFTER DINNER)
     Route: 048
     Dates: start: 20150726, end: 20160504

REACTIONS (10)
  - Pneumonia [Recovered/Resolved]
  - Headache [Recovered/Resolved]
  - Cardiac failure chronic [Recovered/Resolved]
  - Insomnia [Not Recovered/Not Resolved]
  - Cardiac failure chronic [Recovered/Resolved]
  - Pneumonia [Recovered/Resolved]
  - Pneumonia [Recovered/Resolved]
  - Hypothyroidism [Recovered/Resolved]
  - Cardiac failure chronic [Recovered/Resolved]
  - Pneumonia [Fatal]

NARRATIVE: CASE EVENT DATE: 20150620
